FAERS Safety Report 6377778-3 (Version None)
Quarter: 2009Q3

REPORT INFORMATION
  Report Type: 
  Country: None (occurrence: None)
  Receive Date: 20090925
  Receipt Date: 20090915
  Transmission Date: 20100115
  Serious: Yes (Hospitalization, Other)
  Sender: FDA-Public Use
  Company Number: CH-ELI_LILLY_AND_COMPANY-CH200909003875

PATIENT
  Age: 25 Year
  Sex: Male

DRUGS (7)
  1. ZYPREXA [Suspect]
     Dosage: 15 MG, DAILY (1/D)
     Route: 048
     Dates: start: 20090223, end: 20090402
  2. ZYPREXA [Suspect]
     Dosage: 15 MG, DAILY (1/D)
     Route: 048
     Dates: start: 20090806, end: 20090809
  3. ZYPREXA [Suspect]
     Dosage: 20 MG, DAILY (1/D)
     Route: 048
     Dates: start: 20090810, end: 20090825
  4. ZYPREXA [Suspect]
     Dosage: 30 MG, DAILY (1/D)
     Route: 048
     Dates: start: 20090826, end: 20090826
  5. CIPRALEX [Concomitant]
     Dosage: UNK UNK, DAILY (1/D)
     Route: 048
     Dates: start: 20090619, end: 20090712
  6. CIPRALEX [Concomitant]
     Dosage: 20 MG, DAILY (1/D)
     Route: 048
     Dates: start: 20090713
  7. ABILIFY [Concomitant]
     Dosage: 30 MG, DAILY (1/D)
     Dates: start: 20090520, end: 20090805

REACTIONS (5)
  - ACTIVATED PROTEIN C RESISTANCE [None]
  - DEEP VEIN THROMBOSIS [None]
  - DRUG INEFFECTIVE [None]
  - OVERDOSE [None]
  - WEIGHT INCREASED [None]
